FAERS Safety Report 8587169-2 (Version None)
Quarter: 2012Q3

REPORT INFORMATION
  Report Type: 
  Country: None (occurrence: None)
  Receive Date: 20120810
  Receipt Date: 20120221
  Transmission Date: 20120928
  Serious: No
  Sender: FDA-Public Use
  Company Number: US-ASTRAZENECA-2006UW09687

PATIENT
  Age: 77 Year
  Sex: Female
  Weight: 75.7 kg

DRUGS (11)
  1. GLYBURIDE [Concomitant]
     Indication: DIABETES MELLITUS
  2. MULTI-VITAMINS [Concomitant]
  3. ARIMIDEX [Suspect]
     Route: 048
     Dates: start: 20060101
  4. CRESTOR [Suspect]
     Route: 048
  5. METFORMIN HYDROCHLORIDE [Concomitant]
     Indication: DIABETES MELLITUS
  6. ASCORBIC ACID [Concomitant]
  7. JANUVIA [Concomitant]
     Indication: DIABETES MELLITUS
  8. FISH OIL [Concomitant]
  9. CALCIUM [Concomitant]
  10. EXEMESTANE [Suspect]
     Route: 048
  11. OTHER MEDICATIONS [Concomitant]

REACTIONS (4)
  - MALAISE [None]
  - LOW DENSITY LIPOPROTEIN DECREASED [None]
  - ARTHRALGIA [None]
  - HOT FLUSH [None]
